FAERS Safety Report 12207702 (Version 2)
Quarter: 2016Q1

REPORT INFORMATION
  Report Type: Spontaneous
  Country: JP (occurrence: JP)
  Receive Date: 20160324
  Receipt Date: 20160325
  Transmission Date: 20160526
  Serious: Yes (Other)
  Sender: FDA-Public Use
  Company Number: JP-SA-2016SA055970

PATIENT
  Age: 55 Year
  Sex: Male

DRUGS (1)
  1. BCG FOR IMMUNOTHERAPY [Suspect]
     Active Substance: BACILLUS CALMETTE-GUERIN ANTIGEN, UNSPECIFIED SUBSTRAIN
     Indication: BLADDER CANCER
     Dosage: 7TH INSTILLATION
     Route: 043

REACTIONS (3)
  - Hepatic function abnormal [Unknown]
  - Tuberculosis liver [Unknown]
  - Pyrexia [Recovered/Resolved]
